FAERS Safety Report 9359922 (Version 2)
Quarter: 2013Q3

REPORT INFORMATION
  Report Type: Spontaneous
  Country: US (occurrence: US)
  Receive Date: 20130621
  Receipt Date: 20130807
  Transmission Date: 20140515
  Serious: No
  Sender: FDA-Public Use
  Company Number: US-ASTRAZENECA-2013SE42611

PATIENT
  Age: 64 Year
  Sex: Male
  Weight: 63.5 kg

DRUGS (6)
  1. SYMBICORT [Suspect]
     Indication: ASTHMA
     Dosage: 160/4.5 MCG TWO PUFFS TWO TIMES A DAY
     Route: 055
     Dates: start: 2011
  2. SYMBICORT [Suspect]
     Indication: CHRONIC OBSTRUCTIVE PULMONARY DISEASE
     Dosage: 160/4.5 MCG TWO PUFFS TWO TIMES A DAY
     Route: 055
     Dates: start: 2011
  3. LISINOPRIL [Suspect]
     Indication: HYPERTENSION
     Route: 048
     Dates: start: 2011
  4. PROPANOLOL [Suspect]
     Indication: HEART RATE INCREASED
     Route: 048
  5. PROPANOLOL [Suspect]
     Indication: HEART RATE INCREASED
     Route: 048
  6. PROAIR [Concomitant]
     Indication: PROPHYLAXIS
     Dosage: PRN
     Route: 055

REACTIONS (2)
  - Dyspnoea [Recovered/Resolved]
  - Drug dose omission [Recovered/Resolved]
